FAERS Safety Report 16332789 (Version 5)
Quarter: 2024Q1

REPORT INFORMATION
  Report Type: Spontaneous
  Country: US (occurrence: US)
  Receive Date: 20190520
  Receipt Date: 20240228
  Transmission Date: 20240409
  Serious: No
  Sender: FDA-Public Use
  Company Number: US-PFIZER INC-2019211556

PATIENT
  Age: 76 Year
  Sex: Female
  Weight: 47.63 kg

DRUGS (1)
  1. PREMARIN [Suspect]
     Active Substance: ESTROGENS, CONJUGATED
     Indication: Hysterectomy
     Dosage: 0.45 MG, DAILY
     Route: 048
     Dates: start: 1991

REACTIONS (1)
  - Therapeutic response unexpected [Unknown]
